FAERS Safety Report 14179260 (Version 1)
Quarter: 2017Q4

REPORT INFORMATION
  Report Type: Spontaneous
  Country: GB (occurrence: GB)
  Receive Date: 20171110
  Receipt Date: 20171110
  Transmission Date: 20180321
  Serious: Yes (Other)
  Sender: FDA-Public Use
  Company Number: GB-FRESENIUS KABI-FK201300647

PATIENT
  Age: 46 Year
  Sex: Female

DRUGS (26)
  1. ETOPOSIDE (MANUFACTURER UNKNOWN) [Suspect]
     Active Substance: ETOPOSIDE
     Indication: MYELODYSPLASTIC SYNDROME
  2. OMEPRAZOLE. [Suspect]
     Active Substance: OMEPRAZOLE
     Indication: PRODUCT USED FOR UNKNOWN INDICATION
     Route: 048
     Dates: start: 20110820, end: 20110908
  3. ACICLOVIR [Concomitant]
     Active Substance: ACYCLOVIR
     Route: 048
  4. RANITIDINE. [Concomitant]
     Active Substance: RANITIDINE
     Route: 048
  5. MEROPENEM (MANUFACTURER UNKNOWN) [Suspect]
     Active Substance: MEROPENEM
     Indication: PRODUCT USED FOR UNKNOWN INDICATION
     Route: 042
     Dates: start: 20110905, end: 20110910
  6. ANTI-D IMMUNOGLOBULIN [Concomitant]
     Active Substance: HUMAN RHO(D) IMMUNE GLOBULIN
     Route: 058
     Dates: start: 20110902, end: 20110902
  7. ONDANSETRON [Concomitant]
     Active Substance: ONDANSETRON
     Route: 048
  8. PARACETAMOL [Concomitant]
     Active Substance: ACETAMINOPHEN
     Route: 048
  9. TRANEXAMIC ACID. [Concomitant]
     Active Substance: TRANEXAMIC ACID
     Route: 048
  10. VANCOMYCIN (MANUFACTURER UNKNOWN) [Suspect]
     Active Substance: VANCOMYCIN
     Indication: PRODUCT USED FOR UNKNOWN INDICATION
     Dates: start: 20110904, end: 20110909
  11. ETOPOSIDE (MANUFACTURER UNKNOWN) [Suspect]
     Active Substance: ETOPOSIDE
     Indication: ACUTE MYELOID LEUKAEMIA
     Dates: start: 20110819, end: 20110828
  12. DAUNORUBICIN [Suspect]
     Active Substance: DAUNORUBICIN
     Indication: ACUTE MYELOID LEUKAEMIA
     Dates: start: 20110819, end: 20110828
  13. NORETHISTERONE [Suspect]
     Active Substance: NORETHINDRONE
     Indication: PRODUCT USED FOR UNKNOWN INDICATION
     Dates: start: 20110818
  14. ORAMORPH [Concomitant]
     Active Substance: MORPHINE SULFATE
     Route: 042
  15. GEMTUZUMAB OZOGAMICIN [Suspect]
     Active Substance: GEMTUZUMAB OZOGAMICIN
     Indication: ACUTE MYELOID LEUKAEMIA
     Dates: start: 20110819, end: 20110828
  16. GEMTUZUMAB OZOGAMICIN [Suspect]
     Active Substance: GEMTUZUMAB OZOGAMICIN
     Indication: MYELODYSPLASTIC SYNDROME
  17. TAZOCIN [Suspect]
     Active Substance: PIPERACILLIN SODIUM\TAZOBACTAM SODIUM
     Indication: PRODUCT USED FOR UNKNOWN INDICATION
     Route: 042
     Dates: start: 20110822, end: 20110825
  18. CYCLIZINE [Concomitant]
     Active Substance: CYCLIZINE
     Route: 042
  19. CYTARABINE (MANUFACTURER UNKNOWN) [Suspect]
     Active Substance: CYTARABINE
     Indication: ACUTE MYELOID LEUKAEMIA
     Dates: start: 20110819, end: 20110828
  20. CODEINE [Concomitant]
     Active Substance: CODEINE
     Route: 048
  21. DOCUSATE SODIUM. [Concomitant]
     Active Substance: DOCUSATE SODIUM
     Route: 048
  22. LORAZEPAM. [Concomitant]
     Active Substance: LORAZEPAM
     Route: 048
  23. CYTARABINE (MANUFACTURER UNKNOWN) [Suspect]
     Active Substance: CYTARABINE
     Indication: MYELODYSPLASTIC SYNDROME
  24. DAUNORUBICIN [Suspect]
     Active Substance: DAUNORUBICIN
     Indication: MYELODYSPLASTIC SYNDROME
  25. ALLOPURINOL. [Concomitant]
     Active Substance: ALLOPURINOL
     Route: 048
  26. MORPHINE [Concomitant]
     Active Substance: MORPHINE

REACTIONS (3)
  - Thrombocytopenia [Unknown]
  - Platelet count increased [Recovered/Resolved]
  - Alanine aminotransferase increased [Recovered/Resolved]

NARRATIVE: CASE EVENT DATE: 20110910
